FAERS Safety Report 12349646 (Version 3)
Quarter: 2017Q3

REPORT INFORMATION
  Report Type: Spontaneous
  Country: JP (occurrence: JP)
  Receive Date: 20160510
  Receipt Date: 20170907
  Transmission Date: 20171127
  Serious: Yes (Hospitalization)
  Sender: FDA-Public Use
  Company Number: JP-SUN PHARMACEUTICAL INDUSTRIES LTD-2016RR-116218

PATIENT
  Age: 67 Year
  Sex: Male

DRUGS (1)
  1. CLOPIDOGREL [Suspect]
     Active Substance: CLOPIDOGREL BISULFATE
     Indication: CEREBRAL INFARCTION
     Dosage: 75 MG, DAILY
     Route: 065

REACTIONS (1)
  - Thrombotic microangiopathy [Recovering/Resolving]
